FAERS Safety Report 16371709 (Version 2)
Quarter: 2019Q2

REPORT INFORMATION
  Report Type: Spontaneous
  Country: JP (occurrence: JP)
  Receive Date: 20190530
  Receipt Date: 20190617
  Transmission Date: 20190711
  Serious: Yes (Death, Other)
  Sender: FDA-Public Use
  Company Number: JP-BAYER-2019-098792

PATIENT
  Age: 73 Year
  Sex: Male
  Weight: 71.8 kg

DRUGS (5)
  1. MAGNESIUM OXIDE. [Concomitant]
     Active Substance: MAGNESIUM OXIDE
     Dosage: DAILY DOSE 750 MG
     Route: 048
     Dates: start: 20170124, end: 20190507
  2. STIVARGA [Suspect]
     Active Substance: REGORAFENIB
     Indication: COLORECTAL CANCER
     Dosage: 120 MG, QD ON FOR 3 WEEKS AND OFF FOR 1 WEEK
     Route: 048
     Dates: start: 20181213, end: 20190124
  3. AMLODIPINE [Concomitant]
     Active Substance: AMLODIPINE BESYLATE
     Dosage: DAILY DOSE 5 MG
     Route: 048
     Dates: start: 20160607, end: 20190507
  4. STIVARGA [Suspect]
     Active Substance: REGORAFENIB
     Indication: COLORECTAL CANCER
     Dosage: 80 MG, QD
     Route: 048
     Dates: start: 20190131, end: 20190507
  5. VASOLAN [ISOXSUPRINE HYDROCHLORIDE] [Concomitant]
     Active Substance: ISOXSUPRINE HYDROCHLORIDE
     Dosage: DAILY DOSE 40 MG
     Route: 048
     Dates: start: 20160607, end: 20190507

REACTIONS (7)
  - Colorectal cancer recurrent [None]
  - Oedema peripheral [Fatal]
  - Face oedema [Fatal]
  - Dyspnoea [Fatal]
  - Palmar-plantar erythrodysaesthesia syndrome [Recovering/Resolving]
  - Cardiac failure acute [Fatal]
  - Pneumonia [None]

NARRATIVE: CASE EVENT DATE: 20190121
